FAERS Safety Report 9424965 (Version 2)
Quarter: 2013Q3

REPORT INFORMATION
  Report Type: Spontaneous
  Country: US (occurrence: US)
  Receive Date: 20130729
  Receipt Date: 20130920
  Transmission Date: 20140515
  Serious: No
  Sender: FDA-Public Use
  Company Number: US-PFIZER INC-2013219174

PATIENT
  Age: 50 Year
  Sex: Male
  Weight: 118 kg

DRUGS (9)
  1. LYRICA [Suspect]
     Indication: NEURALGIA
     Dosage: 200 MG, 3X/DAY
     Route: 048
     Dates: start: 2005, end: 20130718
  2. CLONAZEPAM [Concomitant]
     Dosage: 1 MG, 3X/DAY
  3. SEROQUEL [Concomitant]
     Dosage: 200 MG, 1X/DAY
  4. LISINOPRIL [Concomitant]
     Dosage: 20 MG, 2X/DAY
  5. PHENERGAN [Concomitant]
     Dosage: 25 MG, AS NEEDED
  6. FLEXERIL [Concomitant]
     Dosage: 10 MG, 3X/DAY
  7. VICODIN [Concomitant]
     Dosage: 7.5/500 MG/MG, 4X/DAY
  8. DURAGESIC [Concomitant]
     Dosage: 25MG AND SOMETIMES USING 12MG, UNK
  9. TRICOR [Concomitant]
     Dosage: 145 MG, 1X/DAY

REACTIONS (2)
  - Neuralgia [Not Recovered/Not Resolved]
  - Ligament sprain [Unknown]
